FAERS Safety Report 16057601 (Version 2)
Quarter: 2019Q3

REPORT INFORMATION
  Report Type: Spontaneous
  Country: US (occurrence: US)
  Receive Date: 20190311
  Receipt Date: 20190827
  Transmission Date: 20191004
  Serious: No
  Sender: FDA-Public Use
  Company Number: US-SA-2019SA063742

PATIENT
  Age: 29 Year
  Sex: Female
  Weight: 70.3 kg

DRUGS (24)
  1. FABRAZYME [Suspect]
     Active Substance: AGALSIDASE BETA
     Indication: FABRY^S DISEASE
     Dosage: 1 MG/KG, QOW
     Route: 042
     Dates: start: 20180611
  2. ACETAMINOPHEN. [Concomitant]
     Active Substance: ACETAMINOPHEN
     Indication: PREMEDICATION
     Dosage: 650 MG
     Route: 048
     Dates: start: 20180614
  3. HYDROCORTISONE. [Concomitant]
     Active Substance: HYDROCORTISONE
     Dosage: 100 MG, PRN
     Route: 048
     Dates: start: 20190703
  4. ACETAMINOPHEN. [Concomitant]
     Active Substance: ACETAMINOPHEN
     Dosage: 650 MG, QD
     Route: 048
     Dates: start: 20190703
  5. DIPHENHYDRAMINE. [Concomitant]
     Active Substance: DIPHENHYDRAMINE
     Dosage: 25 MG, PRN
     Route: 048
     Dates: start: 20190703
  6. EPINEPHRINE. [Concomitant]
     Active Substance: EPINEPHRINE
     Dosage: 0.3 MG, PRN
     Route: 030
     Dates: start: 20190703
  7. FABRAZYME [Suspect]
     Active Substance: AGALSIDASE BETA
     Dosage: 1 MG/KG, QOW
     Route: 042
     Dates: start: 20190703
  8. NORMAL SALINE [Concomitant]
     Active Substance: SODIUM CHLORIDE
     Dosage: 0.9 %
     Route: 042
     Dates: start: 20180614
  9. ACETAMINOPHEN AND CODEINE [Concomitant]
     Active Substance: ACETAMINOPHEN\CODEINE PHOSPHATE
     Dosage: 1 UNK
     Route: 048
     Dates: start: 20190703
  10. STERILE WATER [Concomitant]
     Active Substance: WATER
     Dosage: 1 DF
     Route: 042
     Dates: start: 20180616
  11. DIPHENHYDRAMINE. [Concomitant]
     Active Substance: DIPHENHYDRAMINE
     Indication: ANAPHYLACTIC REACTION
     Dosage: 250 MG
     Route: 048
     Dates: start: 20180614
  12. ACETAMINOPHEN AND CODEINE [Concomitant]
     Active Substance: ACETAMINOPHEN\CODEINE PHOSPHATE
     Dosage: 1 DF, BID
     Route: 048
     Dates: start: 20180607
  13. NAPROXEN. [Concomitant]
     Active Substance: NAPROXEN
     Dosage: 250 MG, PRN
     Route: 048
     Dates: start: 20180607
  14. LORATADINE. [Concomitant]
     Active Substance: LORATADINE
     Indication: PREMEDICATION
     Dosage: 10 MG
     Route: 048
     Dates: start: 20180614
  15. EPINEPHRINE. [Concomitant]
     Active Substance: EPINEPHRINE
     Indication: ANAPHYLACTIC REACTION
     Dosage: 0.3 MG
     Route: 030
     Dates: start: 20180614
  16. CLARITIN-D NOS [Concomitant]
     Active Substance: LORATADINE\PSEUDOEPHEDRINE SULFATE
     Dosage: 1 UNK, Q12H
     Route: 048
     Dates: start: 20180607
  17. SODIUM CHLORIDE. [Concomitant]
     Active Substance: SODIUM CHLORIDE
     Dosage: 0.9 %
     Route: 042
     Dates: start: 20180614
  18. SODIUM CHLORIDE. [Concomitant]
     Active Substance: SODIUM CHLORIDE
     Dosage: UNK UNK, UNK
     Route: 042
     Dates: start: 20190703
  19. NAPROXEN. [Concomitant]
     Active Substance: NAPROXEN
     Dosage: 1 UNK
     Route: 048
     Dates: start: 20190703
  20. HEPARIN [Concomitant]
     Active Substance: HEPARIN SODIUM
     Dosage: 100 UN/ML
     Route: 042
     Dates: start: 20180614
  21. HYDROCORTISONE. [Concomitant]
     Active Substance: HYDROCORTISONE
     Dosage: 100 MG
     Route: 042
     Dates: start: 20180614
  22. LORATADINE. [Concomitant]
     Active Substance: LORATADINE
     Dosage: 10 MG, QD
     Route: 048
     Dates: start: 20190703
  23. NORMAL SALINE [Concomitant]
     Active Substance: SODIUM CHLORIDE
     Dosage: 0.90 %, UNK (DILUTION)
     Route: 042
     Dates: start: 20190703
  24. TRAMADOL. [Concomitant]
     Active Substance: TRAMADOL
     Dosage: 50 MG, PRN
     Route: 048
     Dates: start: 20180607

REACTIONS (2)
  - Gastroenteritis viral [Unknown]
  - Sinusitis [Unknown]

NARRATIVE: CASE EVENT DATE: 201907
